FAERS Safety Report 18683192 (Version 1)
Quarter: 2020Q4

REPORT INFORMATION
  Report Type: Spontaneous
  Country: US (occurrence: US)
  Receive Date: 20201230
  Receipt Date: 20201230
  Transmission Date: 20210114
  Serious: Yes (Hospitalization)
  Sender: FDA-Public Use
  Company Number: None

PATIENT
  Age: 55 Year
  Sex: Female
  Weight: 75.8 kg

DRUGS (11)
  1. HCTZ -DOSE UNKNOWN [Concomitant]
  2. DESVENLAFAXINE SUCCINATE 100MG ER DAILY [Concomitant]
  3. ATORVASTATIN 10MG DAILY [Concomitant]
     Active Substance: ATORVASTATIN
  4. TOPIRAMATE ER 200MG DAILY [Concomitant]
  5. OMEPRAZOLE 20MG DAILY [Concomitant]
  6. LOSARTAN -DOSE UNKNOWN [Concomitant]
  7. CHLORZOXAZONE 250MG TWICE DAILY [Concomitant]
  8. BAMLANIVIMAB. [Suspect]
     Active Substance: BAMLANIVIMAB
     Dates: start: 20201125, end: 20201125
  9. AMLODIPINE 10MG DAILY [Concomitant]
  10. OXYCODONE ER 9MG TWICE DAILY [Concomitant]
  11. PREGABALIN 50MG TWICE DAILY [Concomitant]

REACTIONS (12)
  - Deep vein thrombosis [None]
  - Therapy interrupted [None]
  - Acute kidney injury [None]
  - Visual impairment [None]
  - Hypotension [None]
  - Vitreous floaters [None]
  - Malaise [None]
  - Urinary tract infection [None]
  - Dyspnoea [None]
  - Bradycardia [None]
  - Dizziness [None]
  - Dehydration [None]

NARRATIVE: CASE EVENT DATE: 20201210
